FAERS Safety Report 17911043 (Version 1)
Quarter: 2020Q2

REPORT INFORMATION
  Report Type: Spontaneous
  Country: US (occurrence: US)
  Receive Date: 20200618
  Receipt Date: 20200618
  Transmission Date: 20200714
  Serious: No
  Sender: FDA-Public Use
  Company Number: US-GLENMARK PHARMACEUTICALS-2020GMK047368

PATIENT

DRUGS (1)
  1. NORGESTIMATE AND ETHINYL ESTRADIOL TABLETS USP, 0.25 MG/0.035 MG [Suspect]
     Active Substance: ETHINYL ESTRADIOL\NORGESTIMATE
     Indication: MUSCLE SPASMS
     Dosage: 1 DOSAGE FORM, OD
     Route: 048
     Dates: end: 202003

REACTIONS (4)
  - Product use in unapproved indication [Unknown]
  - Product dispensing error [Unknown]
  - Product substitution issue [Unknown]
  - Eczema [Recovering/Resolving]
